FAERS Safety Report 6346083-3 (Version None)
Quarter: 2009Q3

REPORT INFORMATION
  Report Type: 
  Country: None (occurrence: None)
  Receive Date: 20090909
  Receipt Date: 20090828
  Transmission Date: 20100115
  Serious: Yes (Hospitalization, Other)
  Sender: FDA-Public Use
  Company Number: AU-PFIZER INC-2009157049

PATIENT

DRUGS (1)
  1. VIAGRA [Suspect]
     Dosage: UNK

REACTIONS (18)
  - ABASIA [None]
  - ACTIVITIES OF DAILY LIVING IMPAIRED [None]
  - AGGRESSION [None]
  - AGITATION [None]
  - AMNESIA [None]
  - ANGER [None]
  - CEREBROVASCULAR ACCIDENT [None]
  - CONFUSIONAL STATE [None]
  - CONVULSION [None]
  - FRUSTRATION [None]
  - HALLUCINATION [None]
  - HOMICIDAL IDEATION [None]
  - INCONTINENCE [None]
  - MENTAL IMPAIRMENT [None]
  - MOOD SWINGS [None]
  - RUPTURED CEREBRAL ANEURYSM [None]
  - SHUNT INFECTION [None]
  - SPEECH DISORDER [None]
